FAERS Safety Report 18059210 (Version 1)
Quarter: 2020Q3

REPORT INFORMATION
  Report Type: Spontaneous
  Country: CR (occurrence: CR)
  Receive Date: 20200723
  Receipt Date: 20200723
  Transmission Date: 20201103
  Serious: Yes (Other)
  Sender: FDA-Public Use
  Company Number: CR-PFIZER INC-2020280439

PATIENT
  Age: 75 Year
  Sex: Male

DRUGS (1)
  1. LIPITOR [Suspect]
     Active Substance: ATORVASTATIN CALCIUM
     Dosage: 1 DF, DAILY AT NIGHT
     Route: 048

REACTIONS (4)
  - Blood pressure increased [Unknown]
  - Cerebrovascular accident [Unknown]
  - Infarction [Unknown]
  - Memory impairment [Unknown]
